FAERS Safety Report 9648544 (Version 2)
Quarter: 2013Q4

REPORT INFORMATION
  Report Type: Spontaneous
  Country: DE (occurrence: DE)
  Receive Date: 20131028
  Receipt Date: 20131106
  Transmission Date: 20140711
  Serious: Yes (Other)
  Sender: FDA-Public Use
  Company Number: DE-BAYER-2013-129254

PATIENT
  Age: 74 Year
  Sex: Male
  Weight: 90 kg

DRUGS (1)
  1. LEVITRA [Suspect]
     Dosage: 20 MG, PRN
     Route: 048

REACTIONS (2)
  - Cardiovascular disorder [Recovered/Resolved]
  - Suspected counterfeit product [None]
